FAERS Safety Report 24774156 (Version 2)
Quarter: 2025Q1

REPORT INFORMATION
  Report Type: Spontaneous
  Country: US (occurrence: US)
  Receive Date: 20241225
  Receipt Date: 20250222
  Transmission Date: 20250409
  Serious: No
  Sender: SANOFI AVENTIS
  Company Number: US-SA-2024SA379006

PATIENT
  Age: 63 Year
  Sex: Female

DRUGS (2)
  1. DUPIXENT [Suspect]
     Active Substance: DUPILUMAB
     Indication: Eczema
     Route: 058
     Dates: start: 202409, end: 202409
  2. DUPIXENT [Suspect]
     Active Substance: DUPILUMAB
     Dosage: 300 MG, QOW
     Route: 058
     Dates: start: 2024, end: 2024

REACTIONS (9)
  - Pruritus [Unknown]
  - Eye irritation [Recovering/Resolving]
  - Condition aggravated [Recovering/Resolving]
  - Lacrimation increased [Recovering/Resolving]
  - Ocular hyperaemia [Recovering/Resolving]
  - Erythema of eyelid [Recovering/Resolving]
  - Fear of injection [Unknown]
  - Eczema [Unknown]
  - Dry skin [Unknown]

NARRATIVE: CASE EVENT DATE: 20240101
